FAERS Safety Report 6511540-3 (Version None)
Quarter: 2009Q4

REPORT INFORMATION
  Report Type: 
  Country: None (occurrence: None)
  Receive Date: 20091222
  Receipt Date: 20090420
  Transmission Date: 20100525
  Serious: No
  Sender: FDA-Public Use
  Company Number: CA-ASTRAZENECA-2009UW09744

PATIENT
  Age: 82 Year
  Sex: Male

DRUGS (2)
  1. CRESTOR [Suspect]
     Route: 048
     Dates: start: 20081101, end: 20090301
  2. PLAVIX [Concomitant]

REACTIONS (1)
  - MUSCULOSKELETAL STIFFNESS [None]
